FAERS Safety Report 7823110-5 (Version None)
Quarter: 2011Q4

REPORT INFORMATION
  Report Type: 
  Country: None (occurrence: None)
  Receive Date: 20111019
  Receipt Date: 20111010
  Transmission Date: 20120403
  Serious: Yes (Hospitalization)
  Sender: FDA-Public Use
  Company Number: DE-BIOGENIDEC-2010BI038839

PATIENT
  Age: 49 Year
  Sex: Female
  Weight: 100 kg

DRUGS (5)
  1. VENLAFAXINE [Concomitant]
     Indication: NEURALGIA
     Dates: start: 20100301
  2. PRADAXA [Concomitant]
     Indication: THROMBOSIS PROPHYLAXIS
     Dates: start: 20091201
  3. PANTOPRAZOLE [Concomitant]
     Indication: PROPHYLAXIS
     Dates: start: 20080701
  4. AVONEX [Suspect]
     Indication: RELAPSING-REMITTING MULTIPLE SCLEROSIS
     Route: 030
     Dates: start: 20081027, end: 20100501
  5. BACLOFEN [Concomitant]
     Indication: NEURALGIA
     Dates: start: 20080701

REACTIONS (7)
  - FALL [None]
  - GENERALISED OEDEMA [None]
  - MUSCULAR WEAKNESS [None]
  - COMMINUTED FRACTURE [None]
  - DEVICE FAILURE [None]
  - IMPAIRED HEALING [None]
  - DEVICE RELATED INFECTION [None]
